FAERS Safety Report 6484922-6 (Version None)
Quarter: 2009Q4

REPORT INFORMATION
  Report Type: 
  Country: None (occurrence: None)
  Receive Date: 20091209
  Receipt Date: 20091127
  Transmission Date: 20100525
  Serious: Yes (Death, Hospitalization)
  Sender: FDA-Public Use
  Company Number: FR-WYE-H12468209

PATIENT
  Age: 78 Year
  Sex: Female

DRUGS (14)
  1. CORDARONE [Suspect]
     Indication: ATRIAL FIBRILLATION
     Route: 048
     Dates: start: 19941101, end: 20091027
  2. SPECIAFOLDINE [Suspect]
     Indication: ANAEMIA
     Dosage: 1 UNIT DAILY FROM UNKNOWN DATE TO 07-OCT-2009
     Route: 048
  3. LANTUS [Suspect]
     Indication: INSULIN-REQUIRING TYPE 2 DIABETES MELLITUS
     Dates: start: 20040101, end: 20091024
  4. AUGMENTIN [Suspect]
     Indication: ERYSIPELAS
     Dosage: 1 G DAILY FOR 10 DAYS
     Route: 048
     Dates: start: 20090804, end: 20090801
  5. AUGMENTIN [Suspect]
     Dosage: 1 G DAILY FOR 10 DAYS
     Route: 048
     Dates: start: 20090901
  6. AUGMENTIN [Suspect]
     Route: 048
     Dates: start: 20091002, end: 20091006
  7. LEVOTHYROXINE SODIUM [Concomitant]
  8. PREVISCAN [Suspect]
     Indication: ATRIAL FIBRILLATION
     Route: 048
     Dates: start: 19930101, end: 20091027
  9. DAFALGAN [Suspect]
     Indication: ANALGESIC THERAPY
     Dosage: UNKNOWN DOSE AS NEEDED
     Route: 048
     Dates: start: 19900101, end: 20091007
  10. TEMESTA [Suspect]
     Indication: ANXIETY
     Dosage: 1 UNIT EVERY 1 DAY
     Route: 048
     Dates: start: 19910101, end: 20091007
  11. TRIATEC [Suspect]
     Route: 048
     Dates: start: 20090403, end: 20091007
  12. KALEORID [Concomitant]
  13. LASILIX [Suspect]
     Indication: OEDEMA DUE TO CARDIAC DISEASE
     Route: 048
     Dates: start: 20080101, end: 20091007
  14. NEXIUM [Suspect]
     Indication: GASTRITIS
     Route: 048
     Dates: start: 20080801, end: 20091027

REACTIONS (3)
  - CARDIAC FAILURE [None]
  - CLOSTRIDIUM DIFFICILE COLITIS [None]
  - CONDITION AGGRAVATED [None]
